FAERS Safety Report 6407702-6 (Version None)
Quarter: 2009Q4

REPORT INFORMATION
  Report Type: 
  Country: None (occurrence: None)
  Receive Date: 20091020
  Receipt Date: 20091008
  Transmission Date: 20100525
  Serious: Yes (Hospitalization)
  Sender: FDA-Public Use
  Company Number: US-WYE-H11518909

PATIENT
  Sex: Male

DRUGS (1)
  1. PRISTIQ [Suspect]
     Indication: DEPRESSION
     Route: 048
     Dates: start: 20090901

REACTIONS (7)
  - CHEILITIS [None]
  - CONDITION AGGRAVATED [None]
  - ERYTHEMA [None]
  - LIP SWELLING [None]
  - LIP ULCERATION [None]
  - NASAL ULCER [None]
  - PNEUMONIA [None]
